FAERS Safety Report 8346636-7 (Version None)
Quarter: 2012Q2

REPORT INFORMATION
  Report Type: 
  Country: None (occurrence: None)
  Receive Date: 20120509
  Receipt Date: 20120504
  Transmission Date: 20120825
  Serious: Yes (Death, Hospitalization, Other)
  Sender: FDA-Public Use
  Company Number: PHHY2012MX038840

PATIENT
  Sex: Female

DRUGS (3)
  1. ENALAPRIL MALEATE [Concomitant]
     Dosage: 2 DF, UNK
  2. ZOLEDRONOC ACID [Suspect]
     Indication: OSTEOPOROSIS
     Dosage: 5 MG/100 ML, PER YEAR
     Route: 042
     Dates: start: 20110501
  3. ENALAPRIL MALEATE [Concomitant]
     Dosage: 4 DF, UNK

REACTIONS (7)
  - TENDON RUPTURE [None]
  - BLOOD PRESSURE INCREASED [None]
  - BLOOD PRESSURE INADEQUATELY CONTROLLED [None]
  - DRUG INEFFECTIVE [None]
  - HEADACHE [None]
  - CEREBROVASCULAR ACCIDENT [None]
  - HIP FRACTURE [None]
